FAERS Safety Report 7210605-0 (Version None)
Quarter: 2010Q4

REPORT INFORMATION
  Report Type: 
  Country: None (occurrence: None)
  Receive Date: 20101126
  Receipt Date: 20100923
  Transmission Date: 20110411
  Serious: No
  Sender: FDA-Public Use
  Company Number: 315347

PATIENT
  Age: 67 Year
  Sex: Male

DRUGS (14)
  1. VICTOZA [Suspect]
     Indication: TYPE 2 DIABETES MELLITUS
     Dosage: 0.6 MG, QD, SUBCUTANEOUS ; 1.2 MG, QD, SUBCUTANEOUS
     Route: 058
     Dates: start: 20100916, end: 20100921
  2. VICTOZA [Suspect]
     Indication: TYPE 2 DIABETES MELLITUS
     Dosage: 0.6 MG, QD, SUBCUTANEOUS ; 1.2 MG, QD, SUBCUTANEOUS
     Route: 058
     Dates: start: 20100921
  3. COUMADIN [Suspect]
     Indication: PRODUCT USED FOR UNKNOWN INDICATION
     Dosage: 55MG PER WEEK, ORAL ; 47.5MG PER WEEK, ORAL
     Route: 048
     Dates: start: 20100801
  4. COUMADIN [Suspect]
     Indication: PRODUCT USED FOR UNKNOWN INDICATION
     Dosage: 55MG PER WEEK, ORAL ; 47.5MG PER WEEK, ORAL
     Route: 048
     Dates: start: 20100909
  5. GLIPIZIDE [Concomitant]
  6. LASIX [Concomitant]
  7. ALTACE [Concomitant]
  8. CARVEDILOL [Concomitant]
  9. CRESTOR [Concomitant]
  10. NIACIN [Concomitant]
  11. METFORMIN (METFORMIN) [Concomitant]
  12. ISOSORBIDE (ISOSORBIDE) [Concomitant]
  13. GABAPENTIN [Concomitant]
  14. ASPIRIN [Concomitant]

REACTIONS (1)
  - INTERNATIONAL NORMALISED RATIO INCREASED [None]
